FAERS Safety Report 8918179 (Version 1)
Quarter: 2012Q4

REPORT INFORMATION
  Report Type: 
  Country: US (occurrence: US)
  Receive Date: 20121120
  Receipt Date: 20121120
  Transmission Date: 20130627
  Serious: No
  Sender: FDA-Public Use
  Company Number: US-ASTRAZENECA-2012SE86813

PATIENT
  Age: 65 Year
  Sex: Female

DRUGS (1)
  1. SYMBICORT PMDI [Suspect]
     Dosage: DOSE, FREQUENCY UNKNOWN
     Route: 055

REACTIONS (6)
  - Lung disorder [Unknown]
  - Nasopharyngitis [Unknown]
  - Limb discomfort [Unknown]
  - Chest discomfort [Unknown]
  - Aphonia [Unknown]
  - Dysphonia [Unknown]
